FAERS Safety Report 14148214 (Version 1)
Quarter: 2017Q4

REPORT INFORMATION
  Report Type: Spontaneous
  Country: GB (occurrence: GB)
  Receive Date: 20171101
  Receipt Date: 20171101
  Transmission Date: 20180321
  Serious: Yes (Other)
  Sender: FDA-Public Use
  Company Number: GB-ACCORD-060377

PATIENT
  Age: 24 Year
  Sex: Female
  Weight: 70 kg

DRUGS (8)
  1. BUDESONIDE. [Concomitant]
     Active Substance: BUDESONIDE
     Dosage: BEING WEANED
     Dates: start: 20170704
  2. AMOXICILLIN. [Concomitant]
     Active Substance: AMOXICILLIN
     Dates: start: 20170830, end: 20170904
  3. AZATHIOPRINE. [Concomitant]
     Active Substance: AZATHIOPRINE
     Dates: start: 20170704
  4. PROPRANOLOL [Concomitant]
     Active Substance: PROPRANOLOL HYDROCHLORIDE
     Dates: start: 20170818, end: 20170925
  5. AMITRIPTYLINE [Suspect]
     Active Substance: AMITRIPTYLINE
     Indication: PRODUCT USED FOR UNKNOWN INDICATION
     Dates: start: 20171002
  6. TOPIRAMATE. [Concomitant]
     Active Substance: TOPIRAMATE
     Dosage: START WITH 25MG AND TITRE UP MAX DOSE 50-100 MG
     Dates: start: 20171002
  7. CYCLIZINE [Concomitant]
     Active Substance: CYCLIZINE
     Dosage: TAKE ONE UP TO 3 TIMES/DAY WHEN REQUIRED
     Dates: start: 20170711, end: 20170718
  8. SUMATRIPTAN. [Concomitant]
     Active Substance: SUMATRIPTAN
     Indication: MIGRAINE
     Dosage: TAKE ONE AS DIRECTED. DOSE MAY BE REPEATED AFTER AT LEAST 2 HOURS IF MIGRAINE RECURS
     Dates: start: 20170925

REACTIONS (3)
  - Somnolence [Unknown]
  - Speech disorder [Unknown]
  - Dizziness [Recovered/Resolved]

NARRATIVE: CASE EVENT DATE: 20171002
